FAERS Safety Report 4443577-2 (Version None)
Quarter: 2004Q3

REPORT INFORMATION
  Report Type: 
  Country: None (occurrence: None)
  Receive Date: 20040903
  Receipt Date: 20040903
  Transmission Date: 20050211
  Serious: Yes (Hospitalization)
  Sender: FDA-Public Use
  Company Number: None

PATIENT
  Age: 50 Year
  Sex: Male

DRUGS (1)
  1. 4443582-6-00-01 [Suspect]
     Indication: HYPERTENSION
     Dosage: 10 MG 1/2 TAB A DAILY PO
     Route: 048

REACTIONS (3)
  - BLOOD CREATININE INCREASED [None]
  - ELECTROCARDIOGRAM T WAVE PEAKED [None]
  - HYPERKALAEMIA [None]
